FAERS Safety Report 4688778-3 (Version None)
Quarter: 2005Q2

REPORT INFORMATION
  Report Type: 
  Country: None (occurrence: None)
  Receive Date: 20050608
  Receipt Date: 20050422
  Transmission Date: 20051028
  Serious: No
  Sender: FDA-Public Use
  Company Number: 2005-BP-06673BP

PATIENT
  Age: 65 Year
  Sex: Male

DRUGS (9)
  1. SPIRIVA [Suspect]
     Indication: CHRONIC OBSTRUCTIVE PULMONARY DISEASE
     Dosage: 18 MCG (18 MCG), IH
     Route: 055
     Dates: start: 20050419
  2. LUNESTA [Suspect]
     Indication: INSOMNIA
     Dosage: SEE TEXT (3 MG, 3 MG QHS PRN), PO
     Route: 048
     Dates: start: 20050419
  3. METOCLOPRAMIDE [Suspect]
     Indication: GASTROOESOPHAGEAL REFLUX DISEASE
     Dosage: (NR), PO
     Route: 048
     Dates: start: 20050301
  4. XANAX [Suspect]
     Indication: ANXIETY
     Dosage: (NR), PO
     Route: 048
  5. DECONAMINE (DECONAMINE) [Concomitant]
  6. FLOMAX [Concomitant]
  7. PRILOSEC [Concomitant]
  8. TOPROL-XL [Concomitant]
  9. GAVISCON (GAVISCON /GFR/) [Concomitant]

REACTIONS (3)
  - DIARRHOEA [None]
  - DYSGEUSIA [None]
  - HEADACHE [None]
